FAERS Safety Report 8003181-6 (Version None)
Quarter: 2011Q4

REPORT INFORMATION
  Report Type: 
  Country: None (occurrence: None)
  Receive Date: 20111222
  Receipt Date: 20111213
  Transmission Date: 20120403
  Serious: Yes (Other)
  Sender: FDA-Public Use
  Company Number: PHEH2011US011542

PATIENT
  Sex: Female

DRUGS (5)
  1. TEKTURNA [Suspect]
     Dosage: 150 MG, DAILY
     Route: 048
  2. CLONIDINE [Concomitant]
  3. LEVOTHYROXINE SODIUM [Concomitant]
  4. LISINOPRIL [Concomitant]
  5. ATENOLOL [Concomitant]

REACTIONS (4)
  - NIGHT BLINDNESS [None]
  - VISION BLURRED [None]
  - CATARACT [None]
  - VISUAL IMPAIRMENT [None]
